FAERS Safety Report 6756368-4 (Version None)
Quarter: 2010Q2

REPORT INFORMATION
  Report Type: 
  Country: None (occurrence: None)
  Receive Date: 20100604
  Receipt Date: 20100524
  Transmission Date: 20101027
  Serious: Yes (Other)
  Sender: FDA-Public Use
  Company Number: US-GILEAD-2010-0029407

PATIENT
  Age: 37 Year
  Sex: Female

DRUGS (1)
  1. VIREAD [Suspect]
     Indication: HEPATITIS B
     Dates: start: 20091201

REACTIONS (4)
  - ACNE [None]
  - SWELLING FACE [None]
  - VIRAL LOAD INCREASED [None]
  - VIRAL MUTATION IDENTIFIED [None]
